FAERS Safety Report 6894246 (Version 4)
Quarter: 2020Q3

REPORT INFORMATION
  Report Type: Report from Study
  Country: US (occurrence: US)
  Receive Date: 20090128
  Receipt Date: 20090630
  Transmission Date: 20201104
  Serious: Yes (Other)
  Sender: FDA-Public Use
  Company Number: US-ROCHE-608553

PATIENT
  Age: 83 Year
  Sex: Female
  Weight: 46.3 kg

DRUGS (10)
  1. WARFARIN SODIUM. [Concomitant]
     Active Substance: WARFARIN SODIUM
     Indication: ANTICOAGULANT THERAPY
     Route: 048
  2. VERAPAMIL HYDROCHLORIDE. [Concomitant]
     Active Substance: VERAPAMIL HYDROCHLORIDE
     Dosage: VERAPAMIL SR
     Route: 048
  3. DICAL?D [Concomitant]
     Route: 048
  4. LOTENSIN [Concomitant]
     Active Substance: BENAZEPRIL HYDROCHLORIDE
     Dosage: AT NIGHT
  5. HCTZ [Concomitant]
     Active Substance: HYDROCHLOROTHIAZIDE
     Dosage: AT AM
  6. MULTI?VITAMIN [Concomitant]
     Active Substance: .ALPHA.-TOCOPHEROL ACETATE, DL-\ASCORBIC ACID\CYANOCOBALAMIN\FLUORIDE ION\FOLIC ACID\NIACIN\PYRIDOXINE\RIBOFLAVIN\THIAMINE\VITAMIN A\VITAMIN D
     Dosage: EVERY DAY
  7. ACTONEL [Concomitant]
     Active Substance: RISEDRONATE SODIUM
  8. SALSALATE. [Concomitant]
     Active Substance: SALSALATE
     Route: 048
  9. PROTONIX [Concomitant]
     Active Substance: PANTOPRAZOLE SODIUM
     Route: 048
  10. IBANDRONIC ACID. [Suspect]
     Active Substance: IBANDRONIC ACID
     Indication: OSTEOPOROSIS
     Dosage: RECEIVED ONLY ONE PILL; FORM: PILL
     Route: 048
     Dates: start: 20080118, end: 20080425

REACTIONS (6)
  - Exostosis [Not Recovered/Not Resolved]
  - Malaise [Recovered/Resolved]
  - Abdominal discomfort [Recovered/Resolved]
  - Tooth disorder [Not Recovered/Not Resolved]
  - Abdominal pain upper [Recovered/Resolved]
  - Diarrhoea [Recovered/Resolved]

NARRATIVE: CASE EVENT DATE: 20080118
